FAERS Safety Report 12738837 (Version 1)
Quarter: 2016Q3

REPORT INFORMATION
  Report Type: Spontaneous
  Country: AU (occurrence: AU)
  Receive Date: 20160912
  Receipt Date: 20160912
  Transmission Date: 20161109
  Serious: Yes (Other)
  Sender: FDA-Public Use
  Company Number: AU-IPCA LABORATORIES LIMITED-IPC201609-000739

PATIENT
  Age: 33 Year
  Sex: Male

DRUGS (9)
  1. FUROSEMIDE. [Suspect]
     Active Substance: FUROSEMIDE
  2. LANSOPRAZOLE. [Suspect]
     Active Substance: LANSOPRAZOLE
  3. SPIRONOLACTONE. [Suspect]
     Active Substance: SPIRONOLACTONE
  4. PROPYLTHIOURACIL. [Suspect]
     Active Substance: PROPYLTHIOURACIL
  5. THIAMAZOLE [Suspect]
     Active Substance: METHIMAZOLE
  6. ALPRAZOLAM. [Suspect]
     Active Substance: ALPRAZOLAM
  7. BISOPROLOL [Suspect]
     Active Substance: BISOPROLOL
  8. WARFARIN [Suspect]
     Active Substance: WARFARIN
  9. CANDESARTAN [Suspect]
     Active Substance: CANDESARTAN

REACTIONS (1)
  - Rhabdomyolysis [Recovering/Resolving]
